FAERS Safety Report 9829741 (Version 1)
Quarter: 2014Q1

REPORT INFORMATION
  Report Type: Spontaneous
  Country: GB (occurrence: GB)
  Receive Date: 20140120
  Receipt Date: 20140120
  Transmission Date: 20141002
  Serious: Yes (Hospitalization)
  Sender: FDA-Public Use
  Company Number: GB-ACCORD-021291

PATIENT
  Age: 74 Year
  Sex: Male

DRUGS (7)
  1. AMLODIPINE [Suspect]
     Indication: PRODUCT USED FOR UNKNOWN INDICATION
     Route: 048
  2. PIOGLITAZONE [Suspect]
     Indication: PRODUCT USED FOR UNKNOWN INDICATION
     Route: 048
  3. BIMATOPROST [Concomitant]
     Dosage: 100MCG/ ML. 1 DROP AT NIGHT BOTH EYES.
     Route: 031
  4. TAMSULOSIN/TAMSULOSIN HYDROCHLORIDE [Concomitant]
     Route: 048
  5. ATORVASTATIN [Concomitant]
     Dosage: TAKEN AT NIGHT.
     Route: 048
  6. METFORMIN [Concomitant]
     Route: 048
  7. ACETYLSALICYLIC ACID [Concomitant]
     Route: 048

REACTIONS (2)
  - Aortic stenosis [Unknown]
  - Cardiac failure congestive [Not Recovered/Not Resolved]
